FAERS Safety Report 24660385 (Version 2)
Quarter: 2024Q4

REPORT INFORMATION
  Report Type: Report from Study
  Country: US (occurrence: US)
  Receive Date: 20241125
  Receipt Date: 20241218
  Transmission Date: 20250114
  Serious: Yes (Other)
  Sender: ALNYLAM PHARMACEUTICALS
  Company Number: US-ALNYLAM PHARMACEUTICALS, INC.-ALN-2024-006549

PATIENT

DRUGS (1)
  1. AMVUTTRA [Suspect]
     Active Substance: VUTRISIRAN
     Indication: Hereditary neuropathic amyloidosis
     Dosage: UNK
     Route: 065
     Dates: start: 20221208, end: 20221208

REACTIONS (9)
  - Osteomyelitis chronic [Unknown]
  - Cholecystitis infective [Unknown]
  - Pancreas infection [Unknown]
  - Post procedural infection [Unknown]
  - Surgery [Unknown]
  - Nasopharyngitis [Unknown]
  - Neuralgia [Unknown]
  - Hypoaesthesia [Unknown]
  - Pain [Unknown]
